FAERS Safety Report 9665269 (Version 1)
Quarter: 2013Q4

REPORT INFORMATION
  Report Type: Spontaneous
  Country: AU (occurrence: AU)
  Receive Date: 20131101
  Receipt Date: 20131101
  Transmission Date: 20140711
  Serious: Yes (Other)
  Sender: FDA-Public Use
  Company Number: CHPA2013AU016524

PATIENT
  Age: 24 Year
  Sex: Female

DRUGS (6)
  1. NICOTINELL GUM [Suspect]
     Indication: SMOKING CESSATION THERAPY
     Dosage: 8 TO 10 DF, QD
     Route: 002
  2. NICOTINELL GUM [Suspect]
     Dosage: 10-12 DF, QD
     Route: 002
  3. LEVLEN [Concomitant]
     Indication: CONTRACEPTION
     Dosage: UNK, UNK
     Route: 048
  4. ZOLOFT [Concomitant]
     Indication: DEPRESSION
     Dosage: 100 MG, QD
     Route: 048
  5. SEROQUEL [Concomitant]
     Indication: BIPOLAR DISORDER
     Dosage: 100 MG, QD
     Route: 048
  6. CLOZAPINE [Concomitant]
     Indication: SEDATIVE THERAPY
     Dosage: 0.5 MG, QD
     Route: 048

REACTIONS (3)
  - Drug dependence [Not Recovered/Not Resolved]
  - Sensitivity of teeth [Not Recovered/Not Resolved]
  - Vomiting [Not Recovered/Not Resolved]
